FAERS Safety Report 10418002 (Version 1)
Quarter: 2014Q2

REPORT INFORMATION
  Report Type: Spontaneous
  Country: US (occurrence: None)
  Receive Date: 20140613
  Receipt Date: 20140613
  Transmission Date: 20141212
  Serious: Yes (Other)
  Sender: FDA-Public Use
  Company Number: PHEH2013US019753

PATIENT
  Age: 60 Year
  Sex: Female

DRUGS (5)
  1. EXFORGE HCT [Suspect]
     Dates: start: 2012
  2. AMLODIPINE [Concomitant]
  3. FENOFIBRATE [Concomitant]
  4. GLYBURIDE (GLIBENCLAMIDE) [Concomitant]
  5. MULTI-VIT (VITAMINS NOS) [Concomitant]

REACTIONS (4)
  - Angina pectoris [None]
  - Hypertension [None]
  - Palpitations [None]
  - Feeling abnormal [None]
